FAERS Safety Report 14916421 (Version 1)
Quarter: 2018Q2

REPORT INFORMATION
  Report Type: Spontaneous
  Country: RO (occurrence: RO)
  Receive Date: 20180519
  Receipt Date: 20180519
  Transmission Date: 20180711
  Serious: Yes (Death, Other)
  Sender: FDA-Public Use
  Company Number: RO-ROCHE-2126059

PATIENT
  Age: 67 Year
  Sex: Female

DRUGS (1)
  1. MABTHERA [Suspect]
     Active Substance: RITUXIMAB
     Indication: NON-HODGKIN^S LYMPHOMA
     Route: 042
     Dates: start: 2017, end: 2017

REACTIONS (3)
  - Orthopnoea [Recovered/Resolved]
  - Cardiac arrest [Fatal]
  - Bronchospasm [Recovered/Resolved]

NARRATIVE: CASE EVENT DATE: 2017
